FAERS Safety Report 15566765 (Version 1)
Quarter: 2018Q4

REPORT INFORMATION
  Report Type: Report from Study
  Country: US (occurrence: US)
  Receive Date: 20181030
  Receipt Date: 20181030
  Transmission Date: 20190205
  Serious: Yes (Death)
  Sender: FDA-Public Use
  Company Number: US-EXELIXIS-CABO-18016641

PATIENT
  Sex: Male

DRUGS (1)
  1. COMETRIQ [Suspect]
     Active Substance: CABOZANTINIB S-MALATE
     Indication: MALIGNANT NEOPLASM OF CHOROID
     Dosage: 100 MG, UNK (1 CAPSULE OF 80 MG AND 1 CAPSULE OF 20 MG)

REACTIONS (2)
  - Off label use [Unknown]
  - Death [Fatal]
